FAERS Safety Report 6534415-2 (Version None)
Quarter: 2010Q1

REPORT INFORMATION
  Report Type: 
  Country: None (occurrence: None)
  Receive Date: 20100112
  Receipt Date: 20100104
  Transmission Date: 20100710
  Serious: Yes (Other)
  Sender: FDA-Public Use
  Company Number: US-AMGEN-QUU382163

PATIENT
  Sex: Female
  Weight: 77.2 kg

DRUGS (11)
  1. ENBREL [Suspect]
     Indication: RHEUMATOID ARTHRITIS
     Route: 058
     Dates: start: 20081106
  2. PLAQUENIL [Concomitant]
     Route: 048
  3. CYMBALTA [Concomitant]
     Dates: start: 20081001
  4. PERCOCET [Concomitant]
     Dates: start: 20090105
  5. ASPIRIN [Concomitant]
  6. LIPITOR [Concomitant]
  7. FISH OIL [Concomitant]
  8. PREDNISONE [Concomitant]
  9. DEPAKOTE [Concomitant]
  10. MULTI-VITAMINS [Concomitant]
  11. CALCIUM WITH VITAMIN D [Concomitant]

REACTIONS (10)
  - CELLULITIS [None]
  - CONTUSION [None]
  - DELIRIUM [None]
  - DERMATITIS ACNEIFORM [None]
  - IMPAIRED HEALING [None]
  - NASOPHARYNGITIS [None]
  - RASH [None]
  - SKIN INFECTION [None]
  - SKIN LACERATION [None]
  - WOUND INFECTION [None]
